FAERS Safety Report 15004897 (Version 1)
Quarter: 2018Q2

REPORT INFORMATION
  Report Type: Spontaneous
  Country: US (occurrence: US)
  Receive Date: 20180525
  Receipt Date: 20180525
  Transmission Date: 20180711
  Serious: Yes (Hospitalization, Disabling, Other)
  Sender: FDA-Public Use
  Company Number: None

PATIENT
  Age: 58 Year
  Sex: Female
  Weight: 67.5 kg

DRUGS (2)
  1. ATIVAN [Suspect]
     Active Substance: LORAZEPAM
     Indication: ANXIETY
     Route: 048
     Dates: start: 20110101, end: 20150901
  2. KEPPRA [Concomitant]
     Active Substance: LEVETIRACETAM

REACTIONS (15)
  - Spinal fracture [None]
  - Withdrawal syndrome [None]
  - Headache [None]
  - Face injury [None]
  - Amnesia [None]
  - Epilepsy [None]
  - Scar [None]
  - Drug dependence [None]
  - Fall [None]
  - Generalised tonic-clonic seizure [None]
  - Impaired work ability [None]
  - Pain [None]
  - Brain injury [None]
  - Quality of life decreased [None]
  - Lower limb fracture [None]

NARRATIVE: CASE EVENT DATE: 20110101
